FAERS Safety Report 5034899-5 (Version None)
Quarter: 2006Q2

REPORT INFORMATION
  Report Type: 
  Country: None (occurrence: None)
  Receive Date: 20060623
  Receipt Date: 20060623
  Transmission Date: 20061013
  Serious: Yes (Hospitalization)
  Sender: FDA-Public Use
  Company Number: None

PATIENT
  Age: 64 Year
  Sex: Female
  Weight: 79.3795 kg

DRUGS (1)
  1. FOSAMAX [Suspect]
     Indication: OSTEOPOROSIS PROPHYLAXIS
     Dosage: ONE TABLET ONCE A WEEK PO
     Route: 048
     Dates: start: 20051010, end: 20060606

REACTIONS (2)
  - DYSPNOEA [None]
  - SLEEP DISORDER [None]
